FAERS Safety Report 25710685 (Version 1)
Quarter: 2025Q3

REPORT INFORMATION
  Report Type: Spontaneous
  Country: EU (occurrence: EU)
  Receive Date: 20250821
  Receipt Date: 20250821
  Transmission Date: 20251021
  Serious: Yes (Hospitalization)
  Sender: ABBVIE
  Company Number: None

PATIENT
  Age: 61 Year
  Sex: Female

DRUGS (2)
  1. SKYRIZI [Suspect]
     Active Substance: RISANKIZUMAB-RZAA
     Indication: Psoriatic arthropathy
     Dosage: DOSE 5 APPEARS ADR, 1 PRE- FILLED PEN OF 1ML
     Route: 058
     Dates: start: 20240618
  2. SKYRIZI [Suspect]
     Active Substance: RISANKIZUMAB-RZAA
     Indication: Psoriasis
     Dosage: DOSE 5 APPEARS ADR, 1 PRE- FILLED PEN OF 1ML; REDUCED DOSE
     Route: 058
     Dates: start: 20240618

REACTIONS (2)
  - Infective tenosynovitis [Recovering/Resolving]
  - Streptococcal abscess [Recovered/Resolved]

NARRATIVE: CASE EVENT DATE: 20250604
